FAERS Safety Report 20930030 (Version 1)
Quarter: 2022Q2

REPORT INFORMATION
  Report Type: Spontaneous
  Country: GB (occurrence: GB)
  Receive Date: 20220608
  Receipt Date: 20220608
  Transmission Date: 20220721
  Serious: Yes (Other)
  Sender: FDA-Public Use
  Company Number: GB-MHRA-MIDB-7783d2c5-975e-4217-90ff-4da0e9f93602

PATIENT
  Age: 52 Year

DRUGS (1)
  1. LINEZOLID [Suspect]
     Active Substance: LINEZOLID
     Indication: Product used for unknown indication
     Dosage: 600MG TWICE DAILY
     Route: 048
     Dates: start: 20211210

REACTIONS (1)
  - Eye disorder [Unknown]
